FAERS Safety Report 4286923-5 (Version None)
Quarter: 2004Q1

REPORT INFORMATION
  Report Type: 
  Country: None (occurrence: None)
  Receive Date: 20040204
  Receipt Date: 20040123
  Transmission Date: 20041129
  Serious: Yes (Other)
  Sender: FDA-Public Use
  Company Number: US-JNJFOC-20031203060

PATIENT
  Age: 63 Year
  Sex: Female
  Weight: 57.6068 kg

DRUGS (21)
  1. REMICADE [Suspect]
     Indication: PSORIASIS
     Dosage: SEE IMAGE
     Route: 042
     Dates: start: 20030109
  2. REMICADE [Suspect]
     Indication: RHEUMATOID ARTHRITIS
     Dosage: SEE IMAGE
     Route: 042
     Dates: start: 20030109
  3. REMICADE [Suspect]
     Indication: PSORIASIS
     Dosage: SEE IMAGE
     Route: 042
     Dates: start: 20030122
  4. REMICADE [Suspect]
     Indication: RHEUMATOID ARTHRITIS
     Dosage: SEE IMAGE
     Route: 042
     Dates: start: 20030122
  5. REMICADE [Suspect]
     Indication: PSORIASIS
     Dosage: SEE IMAGE
     Route: 042
     Dates: start: 20030219
  6. REMICADE [Suspect]
     Indication: RHEUMATOID ARTHRITIS
     Dosage: SEE IMAGE
     Route: 042
     Dates: start: 20030219
  7. REMICADE [Suspect]
     Indication: PSORIASIS
     Dosage: SEE IMAGE
     Route: 042
     Dates: start: 20030417
  8. REMICADE [Suspect]
     Indication: RHEUMATOID ARTHRITIS
     Dosage: SEE IMAGE
     Route: 042
     Dates: start: 20030417
  9. REMICADE [Suspect]
     Indication: PSORIASIS
     Dosage: SEE IMAGE
     Route: 042
     Dates: start: 20030617
  10. REMICADE [Suspect]
     Indication: RHEUMATOID ARTHRITIS
     Dosage: SEE IMAGE
     Route: 042
     Dates: start: 20030617
  11. REMICADE [Suspect]
     Indication: PSORIASIS
     Dosage: SEE IMAGE
     Route: 042
     Dates: start: 20030812
  12. REMICADE [Suspect]
     Indication: RHEUMATOID ARTHRITIS
     Dosage: SEE IMAGE
     Route: 042
     Dates: start: 20030812
  13. REMICADE [Suspect]
     Indication: PSORIASIS
     Dosage: SEE IMAGE
     Route: 042
     Dates: start: 20040101
  14. REMICADE [Suspect]
     Indication: RHEUMATOID ARTHRITIS
     Dosage: SEE IMAGE
     Route: 042
     Dates: start: 20040101
  15. METHOTREXATE [Concomitant]
  16. WELCHOL [Concomitant]
  17. SYNTHROID [Concomitant]
  18. EFFEXOR [Concomitant]
  19. PHENERGAN [Concomitant]
  20. FOLIC ACID [Concomitant]
  21. PREMPHASE (PROVELLA-14) [Concomitant]

REACTIONS (4)
  - ANTINUCLEAR ANTIBODY POSITIVE [None]
  - ASTHENIA [None]
  - DIFFICULTY IN WALKING [None]
  - FATIGUE [None]
